FAERS Safety Report 24156433 (Version 3)
Quarter: 2024Q4

REPORT INFORMATION
  Report Type: Spontaneous
  Country: CA (occurrence: CA)
  Receive Date: 20240731
  Receipt Date: 20241014
  Transmission Date: 20250114
  Serious: Yes (Hospitalization, Other)
  Sender: PFIZER
  Company Number: CA-PFIZER INC-PV202400091106

PATIENT
  Age: 60 Year
  Sex: Male
  Weight: 97.8 kg

DRUGS (6)
  1. ZIRABEV [Suspect]
     Active Substance: BEVACIZUMAB-BVZR
     Indication: Glioblastoma
     Dosage: 975 MG, EVERY 2 WEEKS
     Dates: start: 20240501
  2. ZIRABEV [Suspect]
     Active Substance: BEVACIZUMAB-BVZR
     Dosage: 975 MG
     Route: 042
     Dates: start: 20240711
  3. ZIRABEV [Suspect]
     Active Substance: BEVACIZUMAB-BVZR
     Dosage: 975 MG
     Route: 042
     Dates: start: 20240711
  4. ZIRABEV [Suspect]
     Active Substance: BEVACIZUMAB-BVZR
     Dosage: 975 MG
     Route: 042
     Dates: start: 20240724
  5. ZIRABEV [Suspect]
     Active Substance: BEVACIZUMAB-BVZR
     Dosage: 975 MG
     Route: 042
     Dates: start: 20240724
  6. ZIRABEV [Suspect]
     Active Substance: BEVACIZUMAB-BVZR
     Dosage: 975 MG
     Route: 042
     Dates: start: 20240821

REACTIONS (5)
  - Seizure [Unknown]
  - Hemiparesis [Unknown]
  - Blood pressure increased [Unknown]
  - Mobility decreased [Unknown]
  - Weight bearing difficulty [Unknown]

NARRATIVE: CASE EVENT DATE: 20240101
